FAERS Safety Report 18373931 (Version 2)
Quarter: 2020Q4

REPORT INFORMATION
  Report Type: Spontaneous
  Country: DE (occurrence: DE)
  Receive Date: 20201013
  Receipt Date: 20201027
  Transmission Date: 20210114
  Serious: Yes (Life-Threatening, Hospitalization, Other)
  Sender: FDA-Public Use
  Company Number: DE-REGENERON PHARMACEUTICALS, INC.-2020-81723

PATIENT

DRUGS (2)
  1. EYLEA [Suspect]
     Active Substance: AFLIBERCEPT
     Dosage: 1 DF, ONCE INTO UNKNOWN EYE
     Route: 031
     Dates: start: 20200918, end: 20200918
  2. EYLEA [Suspect]
     Active Substance: AFLIBERCEPT
     Indication: MACULAR DEGENERATION
     Dosage: 1 DF, ONCE INTO UNKNOWN EYE
     Route: 031
     Dates: start: 20200803, end: 20200803

REACTIONS (2)
  - Arrhythmia [Unknown]
  - Arrhythmia [Unknown]

NARRATIVE: CASE EVENT DATE: 202008
